FAERS Safety Report 4337871-3 (Version None)
Quarter: 2004Q2

REPORT INFORMATION
  Report Type: 
  Country: None (occurrence: None)
  Receive Date: 20040407
  Receipt Date: 20040324
  Transmission Date: 20050107
  Serious: Yes (Death, Life-Threatening, Hospitalization, Other)
  Sender: FDA-Public Use
  Company Number: NSADSS2001004019

PATIENT
  Age: 58 Year
  Sex: Female

DRUGS (11)
  1. REMICADE [Suspect]
     Indication: RHEUMATOID ARTHRITIS
     Dosage: 225 MG, INTRAVENOUS DRIP
     Route: 041
     Dates: start: 20000719, end: 20000719
  2. REMICADE [Suspect]
     Indication: RHEUMATOID ARTHRITIS
     Dosage: 225 MG, INTRAVENOUS DRIP
     Route: 041
     Dates: start: 20000802, end: 20000802
  3. REMICADE [Suspect]
     Indication: RHEUMATOID ARTHRITIS
     Dosage: 225 MG, INTRAVENOUS DRIP
     Route: 041
     Dates: start: 20000904, end: 20000904
  4. ISONIAZID [Suspect]
     Indication: TUBERCULOSIS
     Dosage: 300 MG, 1 IN 1 DAY
     Dates: start: 20001101
  5. RIFAMPICIN [Suspect]
     Indication: TUBERCULOSIS
     Dosage: 600 MG,  1 IN 1 DAY
     Dates: start: 20001101
  6. METHOTREXATE [Concomitant]
  7. DEFLAZACORT (DEFLAZACORT) [Concomitant]
  8. INDOMETHACIN [Concomitant]
  9. CORTICOSTEROID (CORTICOSTEROIDS) [Concomitant]
  10. THYROID HORMONE (THYROID HORMONES) [Concomitant]
  11. CALCIUM/VITAMIN D (CALCIUM WITH VITAMIN D) [Concomitant]

REACTIONS (8)
  - BACK PAIN [None]
  - DISSEMINATED TUBERCULOSIS [None]
  - HAEMOGLOBIN DECREASED [None]
  - HEPATIC FAILURE [None]
  - HEPATITIS ACUTE [None]
  - JAUNDICE [None]
  - PLATELET COUNT INCREASED [None]
  - RED BLOOD CELL SEDIMENTATION RATE INCREASED [None]
